FAERS Safety Report 7713032-2 (Version None)
Quarter: 2011Q3

REPORT INFORMATION
  Report Type: 
  Country: None (occurrence: None)
  Receive Date: 20110826
  Receipt Date: 20100722
  Transmission Date: 20111222
  Serious: Yes (Other)
  Sender: FDA-Public Use
  Company Number: JP-SANTEN INC.-INC-11-000022

PATIENT
  Sex: Male

DRUGS (4)
  1. LEVOFLOXACIN [Suspect]
     Indication: HORDEOLUM
     Route: 047
     Dates: start: 20100721, end: 20100721
  2. CEFDNIR [Concomitant]
     Route: 065
     Dates: start: 20100721, end: 20100721
  3. OFLOXACIN [Concomitant]
     Route: 065
  4. AZULENE SULFONATE SODIUM [Concomitant]
     Route: 065
     Dates: start: 20100721, end: 20100721

REACTIONS (1)
  - ANAPHYLACTOID REACTION [None]
